FAERS Safety Report 9410658 (Version 2)
Quarter: 2013Q3

REPORT INFORMATION
  Report Type: Report from Study
  Country: DE (occurrence: DE)
  Receive Date: 20130719
  Receipt Date: 20130909
  Transmission Date: 20140515
  Serious: Yes (Hospitalization)
  Sender: FDA-Public Use
  Company Number: DE-ABBOTT-13P-062-1119196-00

PATIENT
  Age: 85 Year
  Sex: Female
  Weight: 59 kg

DRUGS (10)
  1. ZEMPLAR [Suspect]
     Indication: HYPERPARATHYROIDISM SECONDARY
     Route: 048
     Dates: start: 20121221
  2. ZEMPLAR [Suspect]
     Indication: RENAL FAILURE CHRONIC
  3. CONCOR [Concomitant]
     Indication: PRODUCT USED FOR UNKNOWN INDICATION
  4. ISDN [Concomitant]
     Indication: PRODUCT USED FOR UNKNOWN INDICATION
     Route: 048
  5. LASIX [Concomitant]
     Indication: PRODUCT USED FOR UNKNOWN INDICATION
  6. BONDIOL [Concomitant]
     Indication: PRODUCT USED FOR UNKNOWN INDICATION
     Route: 048
     Dates: start: 20120425
  7. DELIX PLUS [Concomitant]
     Indication: PRODUCT USED FOR UNKNOWN INDICATION
  8. ABSEAMED [Concomitant]
     Indication: PRODUCT USED FOR UNKNOWN INDICATION
     Route: 042
     Dates: start: 20120425, end: 20130701
  9. FERRLECIT [Concomitant]
     Indication: PRODUCT USED FOR UNKNOWN INDICATION
     Route: 042
     Dates: start: 20120425, end: 20130507
  10. RETACRIT [Concomitant]
     Indication: PRODUCT USED FOR UNKNOWN INDICATION
     Route: 042
     Dates: start: 20130701

REACTIONS (13)
  - Fall [Recovered/Resolved]
  - Syncope [Recovered/Resolved]
  - Bronchopneumonia [Recovered/Resolved]
  - Dehydration [Recovered/Resolved]
  - Pain in extremity [Recovered/Resolved]
  - General physical health deterioration [Recovered/Resolved]
  - Respiratory failure [Unknown]
  - Blood iron decreased [Recovered/Resolved]
  - Red blood cells urine positive [Recovered/Resolved]
  - C-reactive protein increased [Recovered/Resolved]
  - Blood creatine phosphokinase increased [Recovered/Resolved]
  - Protein urine present [Recovered/Resolved]
  - Blood glucose increased [Recovered/Resolved]
